FAERS Safety Report 6650771-9 (Version None)
Quarter: 2010Q1

REPORT INFORMATION
  Report Type: 
  Country: None (occurrence: None)
  Receive Date: 20100325
  Receipt Date: 20100302
  Transmission Date: 20100710
  Serious: No
  Sender: FDA-Public Use
  Company Number: US-BIOGENIDEC-2010BI004039

PATIENT
  Age: 30 Year
  Sex: Female

DRUGS (1)
  1. TYSABRI [Suspect]
     Indication: MULTIPLE SCLEROSIS
     Route: 042
     Dates: start: 20081201

REACTIONS (18)
  - ABNORMAL SENSATION IN EYE [None]
  - ASTHENIA [None]
  - BEDRIDDEN [None]
  - DEAFNESS UNILATERAL [None]
  - DYSPHAGIA [None]
  - EAR CONGESTION [None]
  - EYE IRRITATION [None]
  - FATIGUE [None]
  - HEADACHE [None]
  - HYPERSOMNIA [None]
  - INSOMNIA [None]
  - NASOPHARYNGITIS [None]
  - OROPHARYNGEAL BLISTERING [None]
  - PAIN [None]
  - PAIN IN EXTREMITY [None]
  - PERIPHERAL COLDNESS [None]
  - PHARYNGITIS STREPTOCOCCAL [None]
  - SINUS CONGESTION [None]
